FAERS Safety Report 6862692-7 (Version None)
Quarter: 2010Q3

REPORT INFORMATION
  Report Type: 
  Country: None (occurrence: None)
  Receive Date: 20100719
  Receipt Date: 20100708
  Transmission Date: 20110219
  Serious: Yes (Hospitalization)
  Sender: FDA-Public Use
  Company Number: 015215

PATIENT
  Sex: Male

DRUGS (5)
  1. KEPPRA [Suspect]
     Indication: EPILEPSY
     Dosage: ORAL (750 MG BID ORAL)
     Route: 048
     Dates: start: 20100101, end: 20100413
  2. KEPPRA [Suspect]
     Indication: EPILEPSY
     Dosage: ORAL (750 MG BID ORAL)
     Route: 048
     Dates: start: 20091222
  3. TEMODAL [Suspect]
     Indication: GLIOBLASTOMA
     Dosage: 145 MG QD ORAL
     Route: 048
     Dates: start: 20100222, end: 20100331
  4. NEXIUM [Concomitant]
  5. CORTANCYL [Concomitant]

REACTIONS (6)
  - CYTOLYTIC HEPATITIS [None]
  - DISEASE RECURRENCE [None]
  - EPILEPSY [None]
  - GLIOBLASTOMA [None]
  - HEPATITIS CHOLESTATIC [None]
  - HYPERSENSITIVITY [None]
